FAERS Safety Report 8196992-8 (Version None)
Quarter: 2012Q1

REPORT INFORMATION
  Report Type: 
  Country: None (occurrence: None)
  Receive Date: 20120309
  Receipt Date: 20120229
  Transmission Date: 20120608
  Serious: Yes (Hospitalization, Other)
  Sender: FDA-Public Use
  Company Number: BR-BAYER-2011-055252

PATIENT
  Age: 34 Year
  Sex: Female

DRUGS (2)
  1. ESCITALOPRAM OXALATE [Concomitant]
     Indication: DEPRESSION
     Dosage: 20 MG, QD
     Route: 048
     Dates: start: 20110401
  2. ESTRADIOL VALERATE/DIENOGEST [Suspect]
     Indication: CONTRACEPTION
     Dosage: 1 DF, QD
     Route: 048
     Dates: start: 20110201, end: 20110625

REACTIONS (11)
  - VAGINAL HAEMORRHAGE [None]
  - VOMITING [None]
  - DIZZINESS [None]
  - ASTHENIA [None]
  - ABORTION SPONTANEOUS [None]
  - HYPOMENORRHOEA [None]
  - PREGNANCY ON ORAL CONTRACEPTIVE [None]
  - NAUSEA [None]
  - HAEMORRHAGE IN PREGNANCY [None]
  - ABDOMINAL PAIN [None]
  - PREMATURE SEPARATION OF PLACENTA [None]
